FAERS Safety Report 6410731-X (Version None)
Quarter: 2009Q4

REPORT INFORMATION
  Report Type: 
  Country: None (occurrence: None)
  Receive Date: 20091022
  Receipt Date: 20091020
  Transmission Date: 20100525
  Serious: Yes (Hospitalization)
  Sender: FDA-Public Use
  Company Number: JP-B.I. PHARMACEUTICALS,INC./RIDGEFIELD-2009-BP-10914NB

PATIENT
  Sex: Male
  Weight: 49 kg

DRUGS (2)
  1. MICARDIS [Suspect]
     Indication: HYPERTENSION
     Dosage: 40 MG
     Route: 048
     Dates: start: 20060914
  2. LASIX [Suspect]
     Indication: CARDIAC FAILURE
     Dosage: 120 MG
     Route: 048
     Dates: start: 20080319

REACTIONS (2)
  - CARDIAC FAILURE [None]
  - DIABETIC NEPHROPATHY [None]
